FAERS Safety Report 6038842-1 (Version None)
Quarter: 2009Q1

REPORT INFORMATION
  Report Type: 
  Country: None (occurrence: None)
  Receive Date: 20090114
  Receipt Date: 20090114
  Transmission Date: 20090719
  Serious: Yes (Other)
  Sender: FDA-Public Use
  Company Number: None

PATIENT
  Age: 16 Year
  Sex: Female
  Weight: 65.7716 kg

DRUGS (3)
  1. MINOCYCLINE HCL [Suspect]
     Indication: ACNE
     Dosage: SEE IMAGE
     Route: 048
     Dates: start: 20080201, end: 20080601
  2. MINOCYCLINE HCL [Suspect]
     Indication: ACNE
     Dosage: SEE IMAGE
     Route: 048
     Dates: start: 20080801, end: 20081004
  3. MINOCYCLINE HCL [Suspect]
     Indication: ACNE
     Dosage: SEE IMAGE

REACTIONS (4)
  - ARTHRALGIA [None]
  - HEPATIC ENZYME INCREASED [None]
  - OEDEMA PERIPHERAL [None]
  - PAIN IN EXTREMITY [None]
